FAERS Safety Report 9493395 (Version 4)
Quarter: 2013Q4

REPORT INFORMATION
  Report Type: Report from Study
  Country: US (occurrence: US)
  Receive Date: 20130902
  Receipt Date: 20131029
  Transmission Date: 20140711
  Serious: Yes (Other)
  Sender: FDA-Public Use
  Company Number: PHEH2013US018315

PATIENT
  Sex: Female

DRUGS (8)
  1. TASIGNA [Suspect]
     Indication: CHRONIC MYELOID LEUKAEMIA
     Dosage: 400 MG, BID
     Route: 048
     Dates: start: 201308, end: 201309
  2. EFEXOR XR [Interacting]
     Dosage: 37.5 MG
  3. LISINOPRIL HYDROCHLORTHIAZID [Concomitant]
     Dosage: 1 DF
  4. FOLIC ACID [Concomitant]
  5. LEVOTHYROXINE [Concomitant]
     Dosage: 100 UG
  6. B 12 [Concomitant]
  7. B6 [Concomitant]
  8. ZYRTEC [Concomitant]
     Dosage: 10 MG

REACTIONS (9)
  - Electrocardiogram QT prolonged [Unknown]
  - Anorectal discomfort [Unknown]
  - Heart rate increased [Unknown]
  - Proctalgia [Unknown]
  - Nightmare [Unknown]
  - Headache [Unknown]
  - Insomnia [Unknown]
  - Sleep disorder [Unknown]
  - Drug interaction [Unknown]
